FAERS Safety Report 5429010-2 (Version None)
Quarter: 2007Q3

REPORT INFORMATION
  Report Type: 
  Country: None (occurrence: None)
  Receive Date: 20070829
  Receipt Date: 20061121
  Transmission Date: 20080115
  Serious: No
  Sender: FDA-Public Use
  Company Number: A0619086A

PATIENT
  Age: 63 Year
  Sex: Female
  Weight: 68.2 kg

DRUGS (6)
  1. MALARONE [Suspect]
     Indication: MALARIA PROPHYLAXIS
     Route: 048
  2. PREMARIN [Concomitant]
  3. PERI-COLACE [Concomitant]
  4. SYNTHROID [Concomitant]
  5. CLARITIN [Concomitant]
  6. PRILOSEC [Concomitant]

REACTIONS (2)
  - ABDOMINAL PAIN [None]
  - NAUSEA [None]
